FAERS Safety Report 5673550-8 (Version None)
Quarter: 2008Q1

REPORT INFORMATION
  Report Type: 
  Country: None (occurrence: None)
  Receive Date: 20080319
  Receipt Date: 20071206
  Transmission Date: 20080703
  Serious: Yes (Hospitalization)
  Sender: FDA-Public Use
  Company Number: US-BOEHRINGER INGELHEIM GMBH, GERMANY-2007-BP-04397BP

PATIENT
  Sex: Male
  Weight: 79 kg

DRUGS (25)
  1. MIRAPEX [Suspect]
     Indication: PARKINSON'S DISEASE
     Route: 048
     Dates: start: 19980317, end: 20030901
  2. ELDEPRYL [Concomitant]
     Indication: PARKINSON'S DISEASE
     Dates: start: 19970401, end: 20010723
  3. SINEMET [Concomitant]
     Indication: PARKINSON'S DISEASE
  4. BIAXIN [Concomitant]
     Dates: start: 19981007
  5. TUSSIGON [Concomitant]
     Dates: start: 19981007
  6. PRILOSEC [Concomitant]
     Dates: start: 19981102
  7. SKELAXIN [Concomitant]
     Dates: start: 19981226
  8. CLARITIN [Concomitant]
     Dates: start: 20000301
  9. FLONASE [Concomitant]
     Dates: start: 20000301
  10. CARBIDOPA AND LEVODOPA [Concomitant]
     Indication: PARKINSON'S DISEASE
     Dates: start: 20020307
  11. PAXIL [Concomitant]
     Indication: PARKINSON'S DISEASE
     Dates: start: 20000918
  12. ZOLOFT [Concomitant]
     Indication: DEPRESSION
     Dates: start: 20001001
  13. AMIBID [Concomitant]
     Dates: start: 20001218
  14. PENICILLIN [Concomitant]
     Dates: start: 20020912
  15. AUGMENTIN '125' [Concomitant]
     Dates: start: 20001218
  16. BENZONATATE [Concomitant]
     Dates: start: 20010129
  17. NALTREXONE HYDROCHLORIDE [Concomitant]
     Dates: start: 20010901
  18. OXYCODONE HCL [Concomitant]
     Dates: start: 20020912
  19. IBUPROFEN [Concomitant]
     Dates: start: 20020912
  20. APAP W/ CODEINE [Concomitant]
     Dates: start: 20030423
  21. ORTHO TRI-CYCLEN [Concomitant]
     Dates: start: 20030302
  22. TRIMOX [Concomitant]
     Dates: start: 20020207
  23. VIT E [Concomitant]
  24. GUAIFENEX [Concomitant]
     Dates: start: 20020207
  25. REVIA [Concomitant]
     Dates: start: 20010912

REACTIONS (3)
  - DEPRESSION [None]
  - OBSESSIVE-COMPULSIVE DISORDER [None]
  - PATHOLOGICAL GAMBLING [None]
